FAERS Safety Report 17874450 (Version 1)
Quarter: 2020Q2

REPORT INFORMATION
  Report Type: Spontaneous
  Country: US (occurrence: US)
  Receive Date: 20200608
  Receipt Date: 20200608
  Transmission Date: 20200714
  Serious: No
  Sender: FDA-Public Use
  Company Number: None

PATIENT
  Sex: Female

DRUGS (7)
  1. TACROLIMUS. [Concomitant]
     Active Substance: TACROLIMUS
  2. MYCOPHENOLATE ACID DR [Concomitant]
  3. ZARXIO [Concomitant]
     Active Substance: FILGRASTIM-SNDZ
  4. COPAXONE [Suspect]
     Active Substance: GLATIRAMER ACETATE
     Indication: MULTIPLE SCLEROSIS
     Route: 058
     Dates: start: 20161220
  5. COPAXONE [Suspect]
     Active Substance: GLATIRAMER ACETATE
     Indication: RENAL TRANSPLANT
     Route: 058
     Dates: start: 20161220
  6. COPAXONE [Suspect]
     Active Substance: GLATIRAMER ACETATE
     Indication: IRON DEFICIENCY ANAEMIA
     Route: 058
     Dates: start: 20161220
  7. ARANESP [Concomitant]
     Active Substance: DARBEPOETIN ALFA

REACTIONS (1)
  - Pyrexia [None]
